FAERS Safety Report 10147471 (Version 1)
Quarter: 2014Q2

REPORT INFORMATION
  Report Type: Spontaneous
  Country: MX (occurrence: MX)
  Receive Date: 20140501
  Receipt Date: 20140501
  Transmission Date: 20141212
  Serious: Yes (Hospitalization)
  Sender: FDA-Public Use
  Company Number: MX-009507513-1404MEX014828

PATIENT
  Age: 17 Year
  Sex: Male

DRUGS (4)
  1. PREDNISONE [Suspect]
     Indication: DERMATOSIS
     Route: 048
  2. PREDNISONE [Suspect]
     Indication: SKIN LESION
  3. DEXAMETHASONE [Suspect]
     Indication: DERMATOSIS
  4. DEXAMETHASONE [Suspect]
     Indication: SKIN LESION

REACTIONS (1)
  - Acne fulminans [Recovered/Resolved with Sequelae]
